FAERS Safety Report 4502101-6 (Version None)
Quarter: 2004Q4

REPORT INFORMATION
  Report Type: 
  Country: None (occurrence: None)
  Receive Date: 20041109
  Receipt Date: 20041026
  Transmission Date: 20050328
  Serious: Yes (Hospitalization)
  Sender: FDA-Public Use
  Company Number: EWC040940447

PATIENT
  Age: 38 Year
  Sex: Female
  Weight: 54 kg

DRUGS (8)
  1. XIGRIS [Suspect]
     Indication: SEPSIS
     Dosage: 24 UG/KG/HR
     Dates: start: 20040826, end: 20040829
  2. PANTOPRAZOLE SODIUM [Concomitant]
  3. ZINACEF 9CEFUROXIME SODIUM) [Concomitant]
  4. CIPROXIN (CIPROFLOXACIN LACTATE) [Concomitant]
  5. METRONIDAZOLE [Concomitant]
  6. SOLU-CORTEF [Concomitant]
  7. ANTITHROMBIN III [Concomitant]
  8. PROPOFOL [Concomitant]

REACTIONS (1)
  - THROMBOCYTOPENIA [None]
